FAERS Safety Report 10380739 (Version 1)
Quarter: 2014Q1

REPORT INFORMATION
  Report Type: Spontaneous
  Country: US (occurrence: None)
  Receive Date: 20140306
  Receipt Date: 20140306
  Transmission Date: 20141002
  Serious: Yes (Disabling)
  Sender: FDA-Public Use
  Company Number: 163-21880-13072256

PATIENT
  Age: 59 Year
  Sex: Male

DRUGS (10)
  1. REVLIMID (LENALIDOMIDE) (10 MILLIGRAM, CAPSULES) [Suspect]
     Indication: PLASMA CELL MYELOMA
     Dosage: 21 IN 28D
     Route: 048
     Dates: start: 20130312, end: 20130807
  2. ZOMETA (ZOLEDRONIC ACID) [Concomitant]
  3. ACYCLOVIR (ACICLOVIR) [Concomitant]
  4. ASPIRIN (ACETYLSALICYLIC ACID) [Concomitant]
  5. VITAMIN B12 (CYANOCOBALAMIN) [Concomitant]
  6. BACTRIM (BACTRIM) [Concomitant]
  7. CALCITRIOL (CALCITRIOL) [Concomitant]
  8. CARVEDILOL (CARVEDILOL) [Concomitant]
  9. CYANOCOBALAMIN (CYANOCOBALAMIN) [Concomitant]
  10. FUROSEMIDE (FUROSEMIDE) [Concomitant]

REACTIONS (1)
  - Renal impairment [None]
